FAERS Safety Report 8770482 (Version 2)
Quarter: 2014Q4

REPORT INFORMATION
  Report Type: Spontaneous
  Country: US (occurrence: US)
  Receive Date: 20120906
  Receipt Date: 20141211
  Transmission Date: 20150529
  Serious: Yes (Hospitalization, Disabling, Other)
  Sender: FDA-Public Use
  Company Number: US-009507513-1208USA012592

PATIENT
  Sex: Male
  Weight: 96.15 kg

DRUGS (1)
  1. PROPECIA [Suspect]
     Active Substance: FINASTERIDE
     Indication: ALOPECIA
     Dosage: 1 MG, QD
     Route: 048
     Dates: start: 200401, end: 200801

REACTIONS (24)
  - Depression [Unknown]
  - Sigmoidectomy [Unknown]
  - Balance disorder [Unknown]
  - Dyslipidaemia [Unknown]
  - Diverticulum [Unknown]
  - Skin graft [Unknown]
  - Diverticular perforation [Unknown]
  - Biopsy bone marrow [Unknown]
  - Biopsy intestine [Unknown]
  - Abdominal pain [Unknown]
  - Anxiety [Unknown]
  - Sexual dysfunction [Unknown]
  - Peyronie^s disease [Unknown]
  - Bacterial infection [Unknown]
  - Osteoarthritis [Unknown]
  - Irritable bowel syndrome [Unknown]
  - Small intestinal bacterial overgrowth [Unknown]
  - Gastrointestinal surgery [Unknown]
  - Erectile dysfunction [Unknown]
  - Penile repair [Unknown]
  - Colectomy [Unknown]
  - Lymphoma [Unknown]
  - Cognitive disorder [Unknown]
  - Small intestine ulcer [Unknown]

NARRATIVE: CASE EVENT DATE: 2005
